FAERS Safety Report 20464495 (Version 1)
Quarter: 2022Q1

REPORT INFORMATION
  Report Type: Spontaneous
  Country: US (occurrence: US)
  Receive Date: 20220211
  Receipt Date: 20220211
  Transmission Date: 20220424
  Serious: Yes (Death)
  Sender: FDA-Public Use
  Company Number: US-NOVARTISPH-NVSC2022US031863

PATIENT
  Age: 74 Year
  Sex: Male

DRUGS (2)
  1. RANITIDINE [Suspect]
     Active Substance: RANITIDINE
     Indication: Gastrooesophageal reflux disease
     Dosage: 150 MG,,DAILY,TWICE A DAY
     Route: 048
     Dates: start: 199102, end: 202001
  2. RANITIDINE [Suspect]
     Active Substance: RANITIDINE
     Indication: Gastrooesophageal reflux disease
     Dosage: 150 MG,,DAILY,TWICE A DAY
     Route: 048
     Dates: start: 199102, end: 202001

REACTIONS (4)
  - Oesophageal carcinoma [Fatal]
  - Renal cancer [Fatal]
  - Lung neoplasm malignant [Fatal]
  - Prostate cancer [Fatal]

NARRATIVE: CASE EVENT DATE: 20080501
